FAERS Safety Report 14873184 (Version 1)
Quarter: 2018Q2

REPORT INFORMATION
  Report Type: Spontaneous
  Country: FR (occurrence: FR)
  Receive Date: 20180510
  Receipt Date: 20180510
  Transmission Date: 20180711
  Serious: Yes (Hospitalization)
  Sender: FDA-Public Use
  Company Number: FR-AXELLIA-001656

PATIENT
  Age: 17 Year
  Sex: Male

DRUGS (7)
  1. CEFTAZIDIME. [Suspect]
     Active Substance: CEFTAZIDIME
     Indication: PANOPHTHALMITIS
  2. METRONIDAZOLE. [Suspect]
     Active Substance: METRONIDAZOLE
     Indication: PANOPHTHALMITIS
     Route: 065
     Dates: start: 20130531
  3. CEFTAZIDIME/CEFTAZIDIME PENTAHYDRATE [Suspect]
     Active Substance: CEFTAZIDIME
     Indication: PANOPHTHALMITIS
     Route: 057
  4. VANCOMYCIN [Suspect]
     Active Substance: VANCOMYCIN
     Indication: PRODUCT USED FOR UNKNOWN INDICATION
     Dosage: 1 MG/0.1 ML
     Route: 050
     Dates: start: 201305
  5. GENTAMICIN. [Suspect]
     Active Substance: GENTAMICIN
     Indication: PANOPHTHALMITIS
  6. IMIPENEM [Suspect]
     Active Substance: IMIPENEM
     Indication: PANOPHTHALMITIS
     Route: 065
     Dates: start: 20130531
  7. GENTAMICIN. [Suspect]
     Active Substance: GENTAMICIN
     Indication: PANOPHTHALMITIS
     Route: 057
     Dates: start: 20130531

REACTIONS (3)
  - Drug ineffective [Unknown]
  - Blindness [Recovered/Resolved with Sequelae]
  - Clostridium test positive [None]
